FAERS Safety Report 10203031 (Version 1)
Quarter: 2014Q2

REPORT INFORMATION
  Report Type: Spontaneous
  Country: AU (occurrence: AU)
  Receive Date: 20140529
  Receipt Date: 20140529
  Transmission Date: 20141212
  Serious: Yes (Congenital Anomaly)
  Sender: FDA-Public Use
  Company Number: PHHY2014AU060935

PATIENT
  Sex: Male

DRUGS (3)
  1. CARBIMAZOLE [Suspect]
     Dosage: MATERNAL DOSE: 15 MG
     Route: 064
  2. FOLIC ACID [Suspect]
     Route: 064
  3. MULTIVIT//VITAMINS NOS [Suspect]
     Route: 064

REACTIONS (7)
  - Congenital nose malformation [Unknown]
  - Congenital eye disorder [Unknown]
  - Hypospadias [Unknown]
  - Hypodontia [Unknown]
  - Microtia [Unknown]
  - Foetal exposure during pregnancy [Unknown]
  - Maternal drugs affecting foetus [None]
